FAERS Safety Report 12180928 (Version 1)
Quarter: 2016Q1

REPORT INFORMATION
  Report Type: Spontaneous
  Country: GB (occurrence: GB)
  Receive Date: 20160315
  Receipt Date: 20160315
  Transmission Date: 20160526
  Serious: Yes (Other)
  Sender: FDA-Public Use
  Company Number: GB-PROMETHEUS LABORATORIES-2016PL000021

PATIENT
  Age: 57 Year
  Sex: Male

DRUGS (8)
  1. MEROPENEM. [Concomitant]
     Active Substance: MEROPENEM
  2. DIFFLAM [Concomitant]
     Active Substance: BENZYDAMINE HYDROCHLORIDE
  3. ONDANSETRON [Concomitant]
     Active Substance: ONDANSETRON
  4. TEICOPLANIN [Concomitant]
     Active Substance: TEICOPLANIN
  5. PIRITON [Concomitant]
     Active Substance: CHLORPHENIRAMINE MALEATE
  6. PARACETAMOL [Concomitant]
     Active Substance: ACETAMINOPHEN
  7. PROLEUKIN [Suspect]
     Active Substance: ALDESLEUKIN
     Indication: RENAL CELL CARCINOMA
     Dosage: 54 UNKNOWN, SEE NARRATIVE
     Route: 042
     Dates: end: 20160217
  8. NYSTATIN. [Concomitant]
     Active Substance: NYSTATIN

REACTIONS (3)
  - Peripheral ischaemia [Recovering/Resolving]
  - Peripheral artery thrombosis [Recovering/Resolving]
  - Aortic thrombosis [Recovering/Resolving]

NARRATIVE: CASE EVENT DATE: 20160217
